FAERS Safety Report 21891511 (Version 7)
Quarter: 2024Q3

REPORT INFORMATION
  Report Type: Other
  Country: CA (occurrence: CA)
  Receive Date: 20230120
  Receipt Date: 20240806
  Transmission Date: 20241017
  Serious: Yes (Hospitalization, Other)
  Sender: PFIZER
  Company Number: CA-PFIZER INC-202300024599

PATIENT
  Age: 53 Year
  Sex: Female

DRUGS (48)
  1. LORAZEPAM [Interacting]
     Active Substance: LORAZEPAM
     Dosage: 1 MG, 1X/DAY
     Route: 065
  2. LORAZEPAM [Interacting]
     Active Substance: LORAZEPAM
     Dosage: 1 MG, 1X/DAY
     Route: 048
  3. SOMATROPIN [Suspect]
     Active Substance: SOMATROPIN
     Dosage: UNK
     Route: 065
  4. SOMATROPIN [Suspect]
     Active Substance: SOMATROPIN
     Dosage: UNK
     Route: 062
  5. VARENICLINE TARTRATE [Interacting]
     Active Substance: VARENICLINE TARTRATE
     Dosage: 0.5 MG, 1X/DAY
     Route: 065
  6. VARENICLINE TARTRATE [Interacting]
     Active Substance: VARENICLINE TARTRATE
     Dosage: 150 MG
     Route: 065
  7. VENLAFAXINE HCL [Interacting]
     Active Substance: VENLAFAXINE HYDROCHLORIDE
     Dosage: 150 MG
     Route: 065
  8. ESTRADIOL [Suspect]
     Active Substance: ESTRADIOL
     Dosage: 1 DF (EVERY 2 MONTHS)
     Route: 062
  9. DIETARY SUPPLEMENT\PROBIOTICS [Suspect]
     Active Substance: DIETARY SUPPLEMENT\PROBIOTICS NOS
     Dosage: 1 DF, 3X/DAY
     Route: 048
  10. BUDESONIDE\FORMOTEROL FUMARATE [Suspect]
     Active Substance: BUDESONIDE\FORMOTEROL FUMARATE
     Dosage: 1 DF, 2X/DAY
     Route: 065
  11. BUDESONIDE\FORMOTEROL FUMARATE [Suspect]
     Active Substance: BUDESONIDE\FORMOTEROL FUMARATE
     Dosage: 1 DF, 2X/DAY
     Route: 048
  12. BUDESONIDE\FORMOTEROL FUMARATE [Suspect]
     Active Substance: BUDESONIDE\FORMOTEROL FUMARATE
     Dosage: 2 MG, 2X/DAY
  13. BUDESONIDE\FORMOTEROL FUMARATE [Suspect]
     Active Substance: BUDESONIDE\FORMOTEROL FUMARATE
     Dosage: 200 MG, 2X/DAY
  14. BUDESONIDE\FORMOTEROL FUMARATE [Suspect]
     Active Substance: BUDESONIDE\FORMOTEROL FUMARATE
     Dosage: 6 MG, 2X/DAY
  15. LINOLEIC ACID, CONJUGATED [Suspect]
     Active Substance: LINOLEIC ACID, CONJUGATED
     Dosage: 1 DF, 3X/DAY
     Route: 048
  16. LINOLEIC ACID, CONJUGATED [Suspect]
     Active Substance: LINOLEIC ACID, CONJUGATED
     Dosage: 1 DF, 3X/DAY
     Route: 048
  17. FISH OIL [Suspect]
     Active Substance: FISH OIL
     Dosage: 1 DF, 2X/DAY
     Route: 048
  18. FISH OIL [Suspect]
     Active Substance: FISH OIL
     Dosage: 1 DF, 2X/DAY
     Route: 048
  19. FISH OIL [Suspect]
     Active Substance: FISH OIL
     Dosage: UNK, 2X/DAY
     Route: 048
  20. MSM [Suspect]
     Active Substance: DIMETHYL SULFONE
     Dosage: 1000 MG, 3X/DAY
     Route: 065
  21. PROGESTERONE [Suspect]
     Active Substance: PROGESTERONE
     Dosage: 100 MG
     Route: 065
  22. PROGESTERONE [Suspect]
     Active Substance: PROGESTERONE
     Dosage: UNK
     Route: 048
  23. PROGESTERONE [Suspect]
     Active Substance: PROGESTERONE
     Dosage: 100 MG
     Route: 048
  24. PROGESTERONE [Suspect]
     Active Substance: PROGESTERONE
     Dosage: 100 MG, DAILY
     Route: 048
  25. VITAMIN D NOS [Suspect]
     Active Substance: CHOLECALCIFEROL\ERGOCALCIFEROL
     Dosage: 1000 IU, 1X/DAY
     Route: 048
  26. VITAMINS NOS [Suspect]
     Active Substance: VITAMINS
     Dosage: 1 DF, 2X/DAY
     Route: 048
  27. BIFIDOBACTERIUM LONGUM [Suspect]
     Active Substance: BIFIDOBACTERIUM LONGUM
     Dosage: UNK
     Route: 048
  28. DOCONEXENT [Suspect]
     Active Substance: DOCONEXENT
     Dosage: UNK
     Route: 065
  29. DOCONEXENT [Suspect]
     Active Substance: DOCONEXENT
     Dosage: 120 MG, 2X/DAY
     Route: 048
  30. ICOSAPENT [Suspect]
     Active Substance: ICOSAPENT
     Dosage: UNK
     Route: 048
  31. ICOSAPENT [Suspect]
     Active Substance: ICOSAPENT
     Dosage: 180 MG, 2X/DAY
     Route: 048
  32. ERGOCALCIFEROL [Suspect]
     Active Substance: ERGOCALCIFEROL
     Dosage: 1000 IU
     Route: 048
  33. ERGOCALCIFEROL [Suspect]
     Active Substance: ERGOCALCIFEROL
     Dosage: 1000 IU, 1X/DAY
     Route: 048
  34. LACTOBACILLUS ACIDOPHILUS [Suspect]
     Active Substance: LACTOBACILLUS ACIDOPHILUS
     Dosage: UNK
     Route: 048
  35. THIOCTIC ACID [Suspect]
     Active Substance: THIOCTIC ACID
     Dosage: UNK
     Route: 065
  36. THIOCTIC ACID [Suspect]
     Active Substance: THIOCTIC ACID
     Dosage: 3.75 MG, 1X/DAY
  37. UBIDECARENONE [Suspect]
     Active Substance: UBIDECARENONE
     Dosage: UNK
     Route: 065
  38. UBIDECARENONE [Suspect]
     Active Substance: UBIDECARENONE
     Dosage: UNK
     Route: 048
  39. RETINOL [Suspect]
     Active Substance: RETINOL
     Dosage: UNK
     Route: 048
  40. RETINOL [Suspect]
     Active Substance: RETINOL
     Dosage: 188 MG, 2X/DAY
  41. VITAMIN C [Suspect]
     Active Substance: ASCORBIC ACID
     Dosage: UNK
     Route: 048
  42. VITAMIN C [Suspect]
     Active Substance: ASCORBIC ACID
     Dosage: 15 MG, 2X/DAY
     Route: 048
  43. .ALPHA.-TOCOPHEROL [Suspect]
     Active Substance: .ALPHA.-TOCOPHEROL
     Dosage: UNK
     Route: 065
  44. .ALPHA.-TOCOPHEROL [Suspect]
     Active Substance: .ALPHA.-TOCOPHEROL
     Dosage: UNK
     Route: 048
  45. .ALPHA.-TOCOPHEROL, D- [Suspect]
     Active Substance: .ALPHA.-TOCOPHEROL, D-
     Dosage: 7.5 MG
     Route: 048
  46. ALCOHOL [Suspect]
     Active Substance: ALCOHOL
     Dosage: UNK
  47. OMEGA-3 FATTY ACIDS [Suspect]
     Active Substance: OMEGA-3 FATTY ACIDS
     Dosage: 1 DF, 2X/DAY
     Route: 048
  48. RETINOL [Suspect]
     Active Substance: RETINOL
     Dosage: 188 MG, 2X/DAY

REACTIONS (6)
  - Drug-induced liver injury [Recovered/Resolved]
  - Hepatic cirrhosis [Recovered/Resolved]
  - Hepatic encephalopathy [Recovered/Resolved]
  - Hepatotoxicity [Recovered/Resolved]
  - Hepatic necrosis [Recovered/Resolved]
  - Drug interaction [Recovered/Resolved]
